FAERS Safety Report 8013682-2 (Version None)
Quarter: 2011Q4

REPORT INFORMATION
  Report Type: 
  Country: None (occurrence: None)
  Receive Date: 20111227
  Receipt Date: 20111227
  Transmission Date: 20120403
  Serious: Yes (Life-Threatening, Disabling)
  Sender: FDA-Public Use
  Company Number: None

PATIENT
  Weight: 81.6475 kg

DRUGS (2)
  1. SIMVASTATIN [Suspect]
     Dosage: 20 MG ONCE/DAY ORAL
     Route: 048
  2. SIMVASTATIN [Suspect]
     Dosage: 40 MG ONCE/DAY ORAL
     Route: 048

REACTIONS (3)
  - FATIGUE [None]
  - MUSCLE SPASMS [None]
  - INTERSTITIAL LUNG DISEASE [None]
